FAERS Safety Report 18257060 (Version 1)
Quarter: 2020Q3

REPORT INFORMATION
  Report Type: Spontaneous
  Country: US (occurrence: US)
  Receive Date: 20200910
  Receipt Date: 20200910
  Transmission Date: 20201103
  Serious: No
  Sender: FDA-Public Use
  Company Number: None

PATIENT
  Age: 48 Year
  Sex: Male
  Weight: 76.5 kg

DRUGS (4)
  1. HYDROCODONE [Concomitant]
     Active Substance: HYDROCODONE
  2. HCG (LYO) 6000 IU VIAL (MIX WITH 6 ML OF BACTERIOSTATIC WATER) [Suspect]
     Active Substance: GONADOTROPHIN, CHORIONIC
     Indication: BLOOD TESTOSTERONE DECREASED
     Dosage: ?          QUANTITY:1 INJECTION(S);;?
     Route: 058
     Dates: start: 20200804, end: 20200904
  3. TESTOSTERONE CYPIONATE 200 MG/ML, 5ML VIAL [Suspect]
     Active Substance: TESTOSTERONE CYPIONATE
     Indication: BLOOD TESTOSTERONE DECREASED
     Dosage: ?          QUANTITY:1 INJECTION(S);?
     Route: 030
     Dates: start: 20200804, end: 20200904
  4. SINGULAIR [Concomitant]
     Active Substance: MONTELUKAST SODIUM

REACTIONS (4)
  - Pain [None]
  - Urine abnormality [None]
  - Pyrexia [None]
  - Renal pain [None]

NARRATIVE: CASE EVENT DATE: 20200804
